FAERS Safety Report 5229764-4 (Version None)
Quarter: 2007Q1

REPORT INFORMATION
  Report Type: 
  Country: None (occurrence: None)
  Receive Date: 20070206
  Receipt Date: 20070129
  Transmission Date: 20070707
  Serious: Yes (Hospitalization, Other)
  Sender: FDA-Public Use
  Company Number: BE-PFIZER INC-2006115703

PATIENT
  Sex: Female

DRUGS (4)
  1. GENOTROPIN [Suspect]
     Indication: HYPOPITUITARISM
     Dosage: DAILY DOSE:.2MG-FREQ:DAILY
     Route: 058
     Dates: start: 20060313, end: 20060906
  2. HYDROCORTISONE [Concomitant]
     Dosage: DAILY DOSE:30MG-FREQ:DAILY
     Route: 048
  3. LEVOTHYROXINE SODIUM [Concomitant]
     Dosage: DAILY DOSE:75MCG-FREQ:DAILY
     Route: 048
  4. DHEA [Concomitant]
     Dosage: DAILY DOSE:25MG-FREQ:DAILY
     Route: 048

REACTIONS (1)
  - PITUITARY TUMOUR REMOVAL [None]
